FAERS Safety Report 7962069-7 (Version None)
Quarter: 2011Q4

REPORT INFORMATION
  Report Type: 
  Country: None (occurrence: None)
  Receive Date: 20111207
  Receipt Date: 20111201
  Transmission Date: 20120403
  Serious: Yes (Hospitalization, Other)
  Sender: FDA-Public Use
  Company Number: JP-JNJFOC-20110704639

PATIENT
  Sex: Male

DRUGS (26)
  1. DORIPENEM MONOHYDRATE [Suspect]
     Indication: FEBRILE NEUTROPENIA
     Route: 041
     Dates: start: 20110616, end: 20110623
  2. CYTARABINE [Suspect]
     Indication: ACUTE LYMPHOCYTIC LEUKAEMIA
     Route: 065
     Dates: start: 20110614, end: 20110614
  3. OLOPATADINE HCL [Concomitant]
     Indication: DRUG ERUPTION
     Route: 048
     Dates: start: 20110616, end: 20110620
  4. CYTARABINE [Concomitant]
     Route: 041
     Dates: start: 20110607, end: 20110612
  5. PINORUBIN [Concomitant]
     Indication: ACUTE LYMPHOCYTIC LEUKAEMIA
     Route: 041
     Dates: start: 20110607, end: 20110608
  6. METHOTREXATE [Suspect]
     Route: 065
     Dates: start: 20110607, end: 20110607
  7. HYDROCORTISONE SODIUM PHOSPHATE [Concomitant]
     Indication: ACUTE LYMPHOCYTIC LEUKAEMIA
     Route: 065
     Dates: start: 20110614, end: 20110614
  8. PREDNISOLONE [Concomitant]
     Indication: ACUTE LYMPHOCYTIC LEUKAEMIA
     Route: 048
     Dates: start: 20110604, end: 20110606
  9. CYCLOPHOSPHAMIDE [Concomitant]
     Route: 041
     Dates: start: 20110607, end: 20110607
  10. CYTARABINE [Concomitant]
     Route: 041
  11. HYDROCORTISONE SODIUM PHOSPHATE [Concomitant]
     Route: 065
     Dates: start: 20110607, end: 20110607
  12. NEUTROGIN [Concomitant]
     Indication: ACUTE LYMPHOCYTIC LEUKAEMIA
     Route: 042
  13. LEUKERIN [Concomitant]
     Indication: ACUTE LYMPHOCYTIC LEUKAEMIA
     Route: 048
     Dates: start: 20110614, end: 20110620
  14. OLOPATADINE HCL [Concomitant]
     Indication: ACUTE LYMPHOCYTIC LEUKAEMIA
     Route: 048
     Dates: start: 20110616, end: 20110620
  15. CYTARABINE [Concomitant]
     Route: 041
     Dates: start: 20110614, end: 20110619
  16. CYCLOPHOSPHAMIDE [Concomitant]
     Indication: ACUTE LYMPHOCYTIC LEUKAEMIA
     Route: 041
     Dates: start: 20110614, end: 20110614
  17. IMMUNE GLOBULIN (HUMAN) [Suspect]
     Indication: FEBRILE NEUTROPENIA
     Route: 042
  18. VANCOMYCIN [Concomitant]
     Indication: FEBRILE NEUTROPENIA
     Route: 048
     Dates: start: 20110621, end: 20110714
  19. MAXIPIME [Concomitant]
     Indication: FEBRILE NEUTROPENIA
     Route: 041
     Dates: start: 20110608, end: 20110616
  20. ALKERAN [Concomitant]
     Indication: ACUTE LYMPHOCYTIC LEUKAEMIA
     Route: 048
     Dates: start: 20110607, end: 20110620
  21. METHOTREXATE [Suspect]
     Indication: ACUTE LYMPHOCYTIC LEUKAEMIA
     Route: 065
     Dates: start: 20110614, end: 20110614
  22. CYTARABINE [Suspect]
     Route: 065
     Dates: start: 20110607, end: 20110607
  23. VFEND [Concomitant]
     Indication: ACUTE LYMPHOCYTIC LEUKAEMIA
     Route: 048
     Dates: start: 20110608
  24. CYCLOPHOSPHAMIDE [Concomitant]
     Route: 041
  25. VFEND [Concomitant]
     Indication: FEBRILE NEUTROPENIA
     Route: 048
     Dates: start: 20110608
  26. URSO 250 [Concomitant]
     Indication: LIVER DISORDER
     Route: 048
     Dates: start: 20110322

REACTIONS (3)
  - DYSLALIA [None]
  - POSTERIOR REVERSIBLE ENCEPHALOPATHY SYNDROME [None]
  - CONVULSION [None]
